FAERS Safety Report 10968423 (Version 1)
Quarter: 2015Q1

REPORT INFORMATION
  Report Type: Report from Study
  Country: AU (occurrence: AU)
  Receive Date: 20150330
  Receipt Date: 20150330
  Transmission Date: 20150721
  Serious: Yes (Hospitalization, Other)
  Sender: FDA-Public Use
  Company Number: AU-ABBVIE-14P-008-1286818-00

PATIENT
  Age: 67 Year
  Sex: Male

DRUGS (7)
  1. DUODOPA [Suspect]
     Active Substance: CARBIDOPA\LEVODOPA
     Indication: PRODUCT USED FOR UNKNOWN INDICATION
     Route: 065
  2. DUODOPA [Suspect]
     Active Substance: CARBIDOPA\LEVODOPA
     Dosage: MORNING RATE OF 19MLS ,EXTRA DOSE 3MLS, CR 5.5
     Route: 065
  3. DUODOPA [Suspect]
     Active Substance: CARBIDOPA\LEVODOPA
     Dosage: CR INCREASED TO 5.1ML/HR
     Route: 050
     Dates: start: 20141003, end: 20141009
  4. DUODOPA [Suspect]
     Active Substance: CARBIDOPA\LEVODOPA
     Dosage: MORNING RATE OF 19MLS ,EXTRA DOSE 3MLS, CR 6.5
     Route: 065
     Dates: start: 20140926
  5. DUODOPA [Suspect]
     Active Substance: CARBIDOPA\LEVODOPA
     Dosage: CR 5.0ML ALL DAY; MR OF 19 AND ED OF 3.0
     Route: 050
     Dates: start: 20141003
  6. SIFROL [Suspect]
     Active Substance: PRAMIPEXOLE
     Indication: PRODUCT USED FOR UNKNOWN INDICATION
     Route: 065
  7. DUODOPA [Suspect]
     Active Substance: CARBIDOPA\LEVODOPA
     Dosage: CR INCREASED TO 5.2ML/HR
     Route: 050
     Dates: start: 20141009

REACTIONS (20)
  - Delirium [Unknown]
  - Paranoia [Recovered/Resolved]
  - Abdominal pain [Recovered/Resolved]
  - Speech disorder [Unknown]
  - Poor quality sleep [Unknown]
  - Pain [Unknown]
  - Incorrect dose administered [Unknown]
  - Muscle twitching [Not Recovered/Not Resolved]
  - Gait disturbance [Unknown]
  - Depression [Unknown]
  - Urinary tract infection [Unknown]
  - Catheter site discharge [Unknown]
  - Confusional state [Unknown]
  - Drug withdrawal syndrome [Unknown]
  - Agitation [Unknown]
  - Device occlusion [Not Recovered/Not Resolved]
  - Procedural pain [Not Recovered/Not Resolved]
  - Device dislocation [Unknown]
  - On and off phenomenon [Not Recovered/Not Resolved]
  - Device connection issue [Unknown]

NARRATIVE: CASE EVENT DATE: 20140917
